FAERS Safety Report 20718993 (Version 2)
Quarter: 2022Q2

REPORT INFORMATION
  Report Type: Spontaneous
  Country: RS (occurrence: None)
  Receive Date: 20220418
  Receipt Date: 20220513
  Transmission Date: 20220721
  Serious: Yes (Hospitalization, Other)
  Sender: FDA-Public Use
  Company Number: RS-ROCHE-3071063

PATIENT
  Age: 51 Year
  Sex: Male

DRUGS (1)
  1. ALECENSA [Suspect]
     Active Substance: ALECTINIB HYDROCHLORIDE
     Indication: Product used for unknown indication
     Route: 048
     Dates: start: 20200707

REACTIONS (2)
  - COVID-19 [Recovered/Resolved]
  - Pneumothorax spontaneous [Unknown]

NARRATIVE: CASE EVENT DATE: 20201031
